FAERS Safety Report 5109172-7 (Version None)
Quarter: 2006Q3

REPORT INFORMATION
  Report Type: 
  Country: None (occurrence: None)
  Receive Date: 20060920
  Receipt Date: 20060911
  Transmission Date: 20061208
  Serious: Yes (Hospitalization)
  Sender: FDA-Public Use
  Company Number: GB-ROCHE-463282

PATIENT
  Age: 37 Year
  Sex: Female
  Weight: 140 kg

DRUGS (3)
  1. ORLISTAT [Suspect]
     Indication: OBESITY
     Route: 048
     Dates: start: 20060523, end: 20060723
  2. ACETAMINOPHEN W/ CODEINE [Concomitant]
     Route: 048
     Dates: start: 20060523
  3. DICLOFENAC [Concomitant]
     Route: 048
     Dates: start: 20060523, end: 20060623

REACTIONS (1)
  - PANCREATITIS [None]
